FAERS Safety Report 4962216-5 (Version None)
Quarter: 2006Q2

REPORT INFORMATION
  Report Type: 
  Country: None (occurrence: None)
  Receive Date: 20060404
  Receipt Date: 20060130
  Transmission Date: 20061013
  Serious: Yes (Other)
  Sender: FDA-Public Use
  Company Number: US-GLAXOSMITHKLINE-A0591494A

PATIENT
  Age: 48 Year
  Sex: Male
  Weight: 90.9 kg

DRUGS (2)
  1. BEXXAR [Suspect]
     Indication: NON-HODGKIN'S LYMPHOMA
     Route: 042
     Dates: start: 20060120
  2. NO CONCURRENT MEDICATION [Concomitant]

REACTIONS (2)
  - ASTHMA LATE ONSET [None]
  - DYSPNOEA [None]
